FAERS Safety Report 14375167 (Version 5)
Quarter: 2020Q3

REPORT INFORMATION
  Report Type: Other
  Country: US (occurrence: US)
  Receive Date: 20180111
  Receipt Date: 20200901
  Transmission Date: 20201102
  Serious: Yes (Other)
  Sender: FDA-Public Use
  Company Number: US-ROCHE-2052021

PATIENT
  Age: 39 Year
  Sex: Female
  Weight: 77.18 kg

DRUGS (9)
  1. BOTOX [Suspect]
     Active Substance: ONABOTULINUMTOXINA
     Indication: MIGRAINE
     Route: 065
     Dates: start: 2016
  2. SUMATRIPTAN. [Concomitant]
     Active Substance: SUMATRIPTAN
     Indication: MIGRAINE
  3. OCREVUS [Suspect]
     Active Substance: OCRELIZUMAB
     Route: 042
  4. TOPIRAMATE. [Concomitant]
     Active Substance: TOPIRAMATE
  5. CRESTOR [Concomitant]
     Active Substance: ROSUVASTATIN CALCIUM
  6. FLEXERIL [Concomitant]
     Active Substance: CYCLOBENZAPRINE HYDROCHLORIDE
     Indication: MUSCLE SPASMS
     Dosage: 2 TABLETS AT NIGHT
     Dates: start: 201901
  7. OCREVUS [Suspect]
     Active Substance: OCRELIZUMAB
     Indication: RELAPSING MULTIPLE SCLEROSIS
     Route: 042
     Dates: start: 20171117
  8. CYMBALTA [Concomitant]
     Active Substance: DULOXETINE HYDROCHLORIDE
     Indication: FIBROMYALGIA
  9. FLONASE [Concomitant]
     Active Substance: FLUTICASONE PROPIONATE
     Indication: HYPERSENSITIVITY

REACTIONS (21)
  - Dysstasia [Unknown]
  - Pyrexia [Unknown]
  - Fatigue [Recovering/Resolving]
  - Multiple sclerosis relapse [Unknown]
  - Fibromyalgia [Not Recovered/Not Resolved]
  - Gait disturbance [Recovering/Resolving]
  - Rhinorrhoea [Recovered/Resolved]
  - Immunodeficiency [Unknown]
  - Infection susceptibility increased [Unknown]
  - Nasopharyngitis [Not Recovered/Not Resolved]
  - Rhinorrhoea [Not Recovered/Not Resolved]
  - Lower respiratory tract infection [Unknown]
  - Influenza like illness [Unknown]
  - Illness [Not Recovered/Not Resolved]
  - Sneezing [Not Recovered/Not Resolved]
  - Ear infection [Unknown]
  - Fatigue [Unknown]
  - Migraine [Not Recovered/Not Resolved]
  - Blood cholesterol abnormal [Unknown]
  - Pain [Unknown]
  - Nerve compression [Recovered/Resolved]

NARRATIVE: CASE EVENT DATE: 20180105
